FAERS Safety Report 7729903-7 (Version None)
Quarter: 2011Q3

REPORT INFORMATION
  Report Type: 
  Country: None (occurrence: None)
  Receive Date: 20110906
  Receipt Date: 20110831
  Transmission Date: 20111222
  Serious: Yes (Other)
  Sender: FDA-Public Use
  Company Number: BR-ABBOTT-11P-020-0851074-00

PATIENT
  Age: 32 Year
  Sex: Female

DRUGS (1)
  1. VALPROATE SODIUM [Suspect]
     Indication: PROPHYLAXIS
     Dosage: DAILY
     Route: 048

REACTIONS (4)
  - CERVIX CERCLAGE PROCEDURE [None]
  - STILLBIRTH [None]
  - UTERINE HYPERTONUS [None]
  - VAGINAL HAEMORRHAGE [None]
